FAERS Safety Report 8334248-0 (Version None)
Quarter: 2012Q1

REPORT INFORMATION
  Report Type: 
  Country: None (occurrence: None)
  Receive Date: 20120329
  Receipt Date: 20110201
  Transmission Date: 20120608
  Serious: Yes (Other)
  Sender: FDA-Public Use
  Company Number: WAES 1102USA00316

PATIENT
  Sex: Male

DRUGS (3)
  1. FOSAPREPITANT DIMEGLUMINE [Suspect]
     Indication: PROPHYLACTIC CHEMOTHERAPY
     Dosage: 150 MG/1X/IV
     Route: 042
  2. CORTICOSTEROIDS [Concomitant]
  3. ALOXI [Concomitant]

REACTIONS (2)
  - DRUG INEFFECTIVE [None]
  - NAUSEA [None]
